FAERS Safety Report 22226935 (Version 1)
Quarter: 2023Q2

REPORT INFORMATION
  Report Type: Spontaneous
  Country: US (occurrence: US)
  Receive Date: 20230419
  Receipt Date: 20230419
  Transmission Date: 20230721
  Serious: No
  Sender: FDA-Public Use
  Company Number: US-JNJFOC-20230375603

PATIENT
  Age: 48 Year
  Sex: Female

DRUGS (2)
  1. MENS ROGAINE EXTRA STRENGTH [Suspect]
     Active Substance: MINOXIDIL
     Indication: Alopecia
     Dosage: DOSE: ABOUT 1/2 CAPFUL
     Route: 061
     Dates: start: 2023, end: 2023
  2. MENS ROGAINE EXTRA STRENGTH [Suspect]
     Active Substance: MINOXIDIL
     Dosage: DOSE: 1/2 CAPFUL
     Route: 061
     Dates: start: 2023

REACTIONS (5)
  - Product use issue [Unknown]
  - Intentional product misuse [Unknown]
  - Product use in unapproved indication [Unknown]
  - Overdose [Unknown]
  - Product container issue [Unknown]

NARRATIVE: CASE EVENT DATE: 20230101
